FAERS Safety Report 5529111-4 (Version None)
Quarter: 2007Q4

REPORT INFORMATION
  Report Type: 
  Country: None (occurrence: None)
  Receive Date: 20071129
  Receipt Date: 20061228
  Transmission Date: 20080405
  Serious: No
  Sender: FDA-Public Use
  Company Number: A0632862A

PATIENT
  Sex: Male

DRUGS (2)
  1. BUPROPION HYDROCHLORIDE [Suspect]
     Indication: DEPRESSION
     Dosage: 200MG PER DAY
     Route: 048
  2. NO CONCURRENT MEDICATION [Concomitant]

REACTIONS (2)
  - ASTHENIA [None]
  - DRUG INEFFECTIVE [None]
